FAERS Safety Report 16325814 (Version 1)
Quarter: 2019Q2

REPORT INFORMATION
  Report Type: Report from Study
  Country: US (occurrence: US)
  Receive Date: 20190517
  Receipt Date: 20190517
  Transmission Date: 20190711
  Serious: Yes (Hospitalization, Disabling, Other)
  Sender: FDA-Public Use
  Company Number: US-SA-2019SA129544

PATIENT
  Age: 65 Year
  Sex: Male

DRUGS (2)
  1. INSULIN GLULISINE [Suspect]
     Active Substance: INSULIN GLULISINE
     Dosage: UNK
  2. LANTUS [Concomitant]
     Active Substance: INSULIN GLARGINE
     Indication: TYPE 2 DIABETES MELLITUS
     Dosage: 30 U, QD (EVERY 24 HOURS)

REACTIONS (6)
  - Disability [Recovering/Resolving]
  - Pancreatic disorder [Recovering/Resolving]
  - Colitis ulcerative [Recovering/Resolving]
  - Mastoiditis [Recovering/Resolving]
  - Ear congestion [Recovering/Resolving]
  - Hypoacusis [Recovering/Resolving]
